FAERS Safety Report 11828686 (Version 1)
Quarter: 2015Q4

REPORT INFORMATION
  Report Type: Spontaneous
  Country: US (occurrence: US)
  Receive Date: 20151211
  Receipt Date: 20151211
  Transmission Date: 20160305
  Serious: Yes (Other)
  Sender: FDA-Public Use
  Company Number: US-BAUSCH-BL-2015-010096

PATIENT
  Age: 65 Year
  Sex: Female

DRUGS (1)
  1. XENAZINE [Suspect]
     Active Substance: TETRABENAZINE
     Indication: HUNTINGTON^S DISEASE
     Route: 048
     Dates: start: 20150224, end: 201506

REACTIONS (4)
  - Suicidal ideation [Unknown]
  - Depression [Unknown]
  - General physical condition abnormal [Unknown]
  - Mental status changes [Unknown]

NARRATIVE: CASE EVENT DATE: 20150301
